FAERS Safety Report 4348021-1 (Version None)
Quarter: 2004Q2

REPORT INFORMATION
  Report Type: 
  Country: None (occurrence: None)
  Receive Date: 20040422
  Receipt Date: 20040414
  Transmission Date: 20050107
  Serious: Yes (Other)
  Sender: FDA-Public Use
  Company Number: 2004209427AU

PATIENT
  Sex: Female

DRUGS (1)
  1. XANAX [Suspect]
     Indication: INSOMNIA
     Dosage: 2MG , QID

REACTIONS (4)
  - DRUG WITHDRAWAL SYNDROME [None]
  - HEART RATE INCREASED [None]
  - SUICIDAL IDEATION [None]
  - TREMOR [None]
